FAERS Safety Report 12255665 (Version 1)
Quarter: 2016Q2

REPORT INFORMATION
  Report Type: Spontaneous
  Country: US (occurrence: US)
  Receive Date: 20160412
  Receipt Date: 20160412
  Transmission Date: 20160815
  Serious: No
  Sender: FDA-Public Use
  Company Number: US-AUROBINDO-AUR-APL-2015-02030

PATIENT
  Sex: Male

DRUGS (1)
  1. METFORMIN 500MG [Suspect]
     Active Substance: METFORMIN HYDROCHLORIDE
     Indication: BLOOD GLUCOSE INCREASED
     Dosage: 500 MG, UNK 2 A.M, 2 P.M
     Route: 065
     Dates: start: 200906

REACTIONS (1)
  - Renal disorder [Not Recovered/Not Resolved]
